FAERS Safety Report 21857469 (Version 1)
Quarter: 2023Q1

REPORT INFORMATION
  Report Type: Other
  Country: CN (occurrence: None)
  Receive Date: 20230113
  Receipt Date: 20230113
  Transmission Date: 20230418
  Serious: Yes (Other)
  Sender: FDA-Public Use
  Company Number: CN-ROCHE-3263097

PATIENT
  Age: 63 Year
  Sex: Female

DRUGS (1)
  1. CAPECITABINE [Suspect]
     Active Substance: CAPECITABINE
     Indication: Hair follicle tumour benign
     Dosage: FOR 5 WEEKS
     Route: 048

REACTIONS (2)
  - Metastasis [Recovered/Resolved]
  - Disease progression [Unknown]
